FAERS Safety Report 7494978-X (Version None)
Quarter: 2011Q2

REPORT INFORMATION
  Report Type: 
  Country: None (occurrence: None)
  Receive Date: 20110520
  Receipt Date: 20110504
  Transmission Date: 20111010
  Serious: No
  Sender: FDA-Public Use
  Company Number: US-B.I. PHARMACEUTICALS,INC./RIDGEFIELD-2011-BP-07089BP

PATIENT
  Sex: Female

DRUGS (7)
  1. PRADAXA [Suspect]
     Indication: ATRIAL FIBRILLATION
     Dosage: 300 MG
     Route: 048
     Dates: start: 20101203
  2. EVISTA [Concomitant]
     Indication: ROUTINE HEALTH MAINTENANCE
  3. PRADAXA [Suspect]
     Indication: ANTICOAGULANT THERAPY
  4. VERPAMIL HCL [Concomitant]
     Indication: HYPERTENSION
  5. SYNTHROID [Concomitant]
     Indication: HYPOTHYROIDISM
  6. METOPROLOL SUCCINATE [Concomitant]
     Indication: ATRIAL FIBRILLATION
  7. EYE SHOT [Concomitant]
     Indication: MACULAR DEGENERATION
     Dosage: FORM: INJECTION

REACTIONS (1)
  - OCULAR HYPERAEMIA [None]
